FAERS Safety Report 9556040 (Version 1)
Quarter: 2013Q3

REPORT INFORMATION
  Report Type: Other
  Country: FR (occurrence: FR)
  Receive Date: 20130926
  Receipt Date: 20130926
  Transmission Date: 20140515
  Serious: Yes (Hospitalization)
  Sender: FDA-Public Use
  Company Number: FR-SUN PHARMACEUTICAL INDUSTRIES LTD-2013SUN04760

PATIENT
  Sex: 0

DRUGS (15)
  1. PANTOPRAZOLE SUN 40 MG POUDRE POUR SOLUTION INJECTABLE [Suspect]
     Indication: PRODUCT USED FOR UNKNOWN INDICATION
     Dosage: UNK
     Route: 042
     Dates: start: 20130601, end: 20130611
  2. VFEND [Suspect]
     Indication: PRODUCT USED FOR UNKNOWN INDICATION
     Dosage: UNK
     Route: 048
     Dates: start: 20130606, end: 20130607
  3. ZARZIO 30 MU/0.5 ML [Suspect]
     Indication: PRODUCT USED FOR UNKNOWN INDICATION
     Dosage: UNK
     Route: 058
     Dates: start: 20130604, end: 20130609
  4. SMECTA [Suspect]
     Indication: PRODUCT USED FOR UNKNOWN INDICATION
     Dosage: UNK
     Route: 048
     Dates: start: 20130603, end: 20130610
  5. METOCLOPRAMIDE RENAUDIN [Suspect]
     Dosage: UNK
     Route: 042
     Dates: start: 20130601, end: 20130608
  6. DUROGESIC 25?G/H [Suspect]
     Indication: PRODUCT USED FOR UNKNOWN INDICATION
     Dosage: UNK
     Route: 062
     Dates: start: 20130601, end: 20130610
  7. ATARAX 25 MG [Suspect]
     Indication: PRODUCT USED FOR UNKNOWN INDICATION
     Dosage: 50 MG, QD
     Route: 048
     Dates: start: 20130531, end: 20130610
  8. GRANISETRON B BRAUN 3 MG/ 3 ML [Suspect]
     Indication: PRODUCT USED FOR UNKNOWN INDICATION
     Dosage: 6 MG, QD
     Route: 042
     Dates: start: 20130530, end: 20130609
  9. GAVISCON [Suspect]
     Indication: PRODUCT USED FOR UNKNOWN INDICATION
     Dosage: UNK
     Route: 048
     Dates: start: 20130529, end: 20130610
  10. BACTRIM FORTE [Concomitant]
     Dosage: UNK
     Dates: start: 20130531
  11. AMIKACIN MYLAN [Concomitant]
     Dosage: UNK
     Dates: start: 20130531
  12. VALACICLOVIR [Concomitant]
  13. ACICLOVIR MYLAN [Concomitant]
     Dosage: UNK
     Dates: start: 20130601
  14. CANCIDAS [Concomitant]
     Dosage: UNK
     Dates: start: 20130605, end: 20130606
  15. PARACETAMOL [Concomitant]
     Dosage: UNK
     Route: 042
     Dates: start: 20130605

REACTIONS (3)
  - Myoclonus [Recovered/Resolved]
  - Respiratory disorder [Recovered/Resolved]
  - Hallucination, visual [Recovered/Resolved]
